FAERS Safety Report 6313547-8 (Version None)
Quarter: 2009Q3

REPORT INFORMATION
  Report Type: 
  Country: None (occurrence: None)
  Receive Date: 20090818
  Receipt Date: 20090817
  Transmission Date: 20100115
  Serious: Yes (Death, Hospitalization)
  Sender: FDA-Public Use
  Company Number: US-GILEAD-2009-0022453

PATIENT
  Sex: Female

DRUGS (17)
  1. LETAIRIS [Suspect]
     Indication: PULMONARY ARTERIAL HYPERTENSION
     Route: 048
     Dates: start: 20080513
  2. ASPIRIN [Concomitant]
  3. LOVENOX [Concomitant]
  4. METOPROLOL [Concomitant]
  5. SIMVASTATIN [Concomitant]
  6. QUESTRAN POW [Concomitant]
  7. DUONEB [Concomitant]
  8. GABAPENTIN [Concomitant]
  9. LEVOTHYROXINE [Concomitant]
  10. PANTOPRAZOLE SODIUM [Concomitant]
  11. LANTUS [Concomitant]
  12. NOVOLOG [Concomitant]
  13. HUMULIN R INJ [Concomitant]
  14. LEVEMIR INJ [Concomitant]
  15. EFFEXOR [Concomitant]
  16. XANAX [Concomitant]
  17. LOMOTIL [Concomitant]

REACTIONS (5)
  - DEATH [None]
  - PNEUMONIA [None]
  - RENAL FAILURE CHRONIC [None]
  - RESPIRATORY FAILURE [None]
  - SEPSIS SYNDROME [None]
